FAERS Safety Report 9172793 (Version 1)
Quarter: 2012Q4

REPORT INFORMATION
  Report Type: 
  Country: US (occurrence: US)
  Receive Date: 20120911
  Receipt Date: 20120911
  Transmission Date: 20130627
  Serious: Yes (Other)
  Sender: FDA-Public Use
  Company Number: US-ROCHE-1120268

PATIENT
  Sex: Female

DRUGS (4)
  1. BONIVA [Suspect]
     Indication: OSTEOPOROSIS
     Route: 065
     Dates: start: 200601, end: 2010
  2. BONIVA [Suspect]
     Indication: OSTEOPENIA
  3. FOSAMAX [Suspect]
     Indication: OSTEOPOROSIS
     Route: 065
     Dates: start: 1998, end: 200601
  4. FOSAMAX [Suspect]
     Indication: OSTEOPENIA

REACTIONS (2)
  - Low turnover osteopathy [Unknown]
  - Femur fracture [Unknown]
